FAERS Safety Report 7167757-0 (Version None)
Quarter: 2010Q4

REPORT INFORMATION
  Report Type: 
  Country: None (occurrence: None)
  Receive Date: 20101216
  Receipt Date: 20101005
  Transmission Date: 20110411
  Serious: No
  Sender: FDA-Public Use
  Company Number: A0884960A

PATIENT
  Age: 48 Year
  Sex: Female

DRUGS (1)
  1. NICORETTE [Suspect]
     Indication: SMOKING CESSATION THERAPY
     Dates: end: 20101001

REACTIONS (3)
  - APHTHOUS STOMATITIS [None]
  - LOCAL SWELLING [None]
  - ORAL DISCOMFORT [None]
